FAERS Safety Report 8231739-8 (Version None)
Quarter: 2012Q1

REPORT INFORMATION
  Report Type: 
  Country: None (occurrence: None)
  Receive Date: 20120321
  Receipt Date: 20120309
  Transmission Date: 20120608
  Serious: Yes (Other)
  Sender: FDA-Public Use
  Company Number: CIP-2012-00086

PATIENT
  Sex: Female

DRUGS (2)
  1. PACLITAXEL [Suspect]
     Indication: ENDOMETRIAL CANCER
     Dosage: 175 MG/M2 (EVERY 21 DAYS FOR 3 CYCLES)
  2. CARBOPLATIN [Suspect]
     Indication: ENDOMETRIAL CANCER
     Dosage: AREA UNDER THE CURVE 5 OR 6 (EVERY 21 DAYS 3 CYCLES)

REACTIONS (1)
  - CONVULSION [None]
